FAERS Safety Report 6735497-5 (Version None)
Quarter: 2010Q2

REPORT INFORMATION
  Report Type: 
  Country: None (occurrence: None)
  Receive Date: 20100521
  Receipt Date: 20100510
  Transmission Date: 20101027
  Serious: Yes (Life-Threatening, Hospitalization)
  Sender: FDA-Public Use
  Company Number: FR-BAXTER-2010BH002129

PATIENT
  Age: 38 Year
  Sex: Female

DRUGS (19)
  1. GAMMAGARD LIQUID [Suspect]
     Indication: HISTIOCYTOSIS HAEMATOPHAGIC
     Route: 042
     Dates: start: 20090101, end: 20100101
  2. GAMMAGARD LIQUID [Suspect]
     Indication: OFF LABEL USE
     Route: 042
     Dates: start: 20090101, end: 20100101
  3. CORTANCYL [Suspect]
     Indication: DRUG USE FOR UNKNOWN INDICATION
     Route: 048
  4. XARELTO [Suspect]
     Indication: DRUG USE FOR UNKNOWN INDICATION
     Route: 048
     Dates: start: 20090201, end: 20091112
  5. TRACLEER [Concomitant]
  6. NEORAL [Concomitant]
  7. AMLOR [Concomitant]
  8. LOSARTAN POTASSIUM [Concomitant]
  9. ZOCOR [Concomitant]
  10. XANAX [Concomitant]
  11. INIPOMP [Concomitant]
  12. ZYPREXA [Concomitant]
  13. MOTILIUM ^JANSSEN^ [Concomitant]
  14. SPECIAFOLDINE [Concomitant]
  15. CACIT VITAMINE D3 [Concomitant]
  16. DEDROGYL [Concomitant]
  17. LORMETAZEPAM [Concomitant]
  18. NEORECORMON ^BOEHRINGER MANNHEIM^ [Concomitant]
  19. IMMU-G [Concomitant]
     Dates: start: 20080101

REACTIONS (10)
  - ABDOMINAL PAIN [None]
  - ABDOMINAL PAIN UPPER [None]
  - ANAEMIA [None]
  - DIEULAFOY'S VASCULAR MALFORMATION [None]
  - GASTRIC ULCER HAEMORRHAGE [None]
  - MALAISE [None]
  - MELAENA [None]
  - PALLOR [None]
  - RECTAL HAEMORRHAGE [None]
  - SMALL INTESTINAL HAEMORRHAGE [None]
